FAERS Safety Report 21350384 (Version 1)
Quarter: 2022Q3

REPORT INFORMATION
  Report Type: Spontaneous
  Country: US (occurrence: US)
  Receive Date: 20220919
  Receipt Date: 20220919
  Transmission Date: 20221026
  Serious: Yes (Hospitalization)
  Sender: FDA-Public Use
  Company Number: US-CHIESI-2022CHF04705

PATIENT
  Age: 5 Year
  Sex: Female

DRUGS (1)
  1. BETHKIS [Suspect]
     Active Substance: TOBRAMYCIN
     Indication: Cystic fibrosis lung
     Dosage: 1 DOSAGE FORM, BID
     Route: 055
     Dates: start: 202002

REACTIONS (2)
  - Ill-defined disorder [Unknown]
  - Off label use [Not Recovered/Not Resolved]

NARRATIVE: CASE EVENT DATE: 20200201
